FAERS Safety Report 18497329 (Version 1)
Quarter: 2020Q4

REPORT INFORMATION
  Report Type: Spontaneous
  Country: US (occurrence: US)
  Receive Date: 20201112
  Receipt Date: 20201112
  Transmission Date: 20210114
  Serious: Yes (Other)
  Sender: FDA-Public Use
  Company Number: US-PURDUE-USA-2020-0173598

PATIENT
  Sex: Female

DRUGS (3)
  1. MORPHINE SULFATE EXTENDED-RELEASE TABLETS (RHODES 74-769, 74-862) [Suspect]
     Active Substance: MORPHINE SULFATE
     Indication: PAIN
     Dosage: 30 MG, BID
     Route: 048
  2. HYDROCODONE BITARTRATE AND ACETAMINOPHEN [Suspect]
     Active Substance: ACETAMINOPHEN\HYDROCODONE BITARTRATE
     Indication: PRODUCT USED FOR UNKNOWN INDICATION
     Dosage: 10-325 MG
     Route: 048
  3. OXYCODONE HCL TABLETS (RHODES 91-490) [Suspect]
     Active Substance: OXYCODONE HYDROCHLORIDE
     Indication: PAIN
     Dosage: 30 MG, QID
     Route: 048

REACTIONS (12)
  - Overdose [Unknown]
  - Drug dependence [Unknown]
  - Drug abuse [Unknown]
  - Bowel movement irregularity [Unknown]
  - Insomnia [Unknown]
  - Anxiety [Unknown]
  - Palpitations [Unknown]
  - Hernia [Unknown]
  - Haemorrhoids [Unknown]
  - Emotional distress [Unknown]
  - Cardiac dysfunction [Unknown]
  - Unevaluable event [Unknown]
